FAERS Safety Report 8855870 (Version 1)
Quarter: 2012Q4

REPORT INFORMATION
  Report Type: Spontaneous
  Country: US (occurrence: None)
  Receive Date: 20121022
  Receipt Date: 20121022
  Transmission Date: 20130627
  Serious: Yes (Other)
  Sender: FDA-Public Use
  Company Number: None

PATIENT
  Age: 59 Year
  Sex: Female
  Weight: 90.72 kg

DRUGS (1)
  1. CYMBALTA [Suspect]

REACTIONS (8)
  - Drug withdrawal syndrome [None]
  - Mood swings [None]
  - Mental disorder [None]
  - Attention deficit/hyperactivity disorder [None]
  - Feeling abnormal [None]
  - Anger [None]
  - Communication disorder [None]
  - Emotional disorder [None]
